FAERS Safety Report 15953297 (Version 4)
Quarter: 2019Q2

REPORT INFORMATION
  Report Type: Spontaneous
  Country: US (occurrence: US)
  Receive Date: 20190212
  Receipt Date: 20190405
  Transmission Date: 20190711
  Serious: Yes (Other)
  Sender: FDA-Public Use
  Company Number: US-BAYER-2019-030068

PATIENT
  Age: 39 Year
  Sex: Female
  Weight: 146.5 kg

DRUGS (6)
  1. MIRENA [Suspect]
     Active Substance: LEVONORGESTREL
     Indication: CONTRACEPTION
     Dosage: 20 MCG/24HR, CONT
     Route: 015
     Dates: start: 20181023, end: 20181213
  2. MIRTAZAPINE. [Concomitant]
     Active Substance: MIRTAZAPINE
     Dosage: 1 DF, QD
     Route: 048
  3. CLEOCIN [CLINDAMYCIN PHOSPHATE] [Concomitant]
     Dosage: UNK UNK, QD
     Route: 067
     Dates: start: 20180829
  4. MIRENA [Suspect]
     Active Substance: LEVONORGESTREL
     Indication: CONTRACEPTION
  5. MIRENA [Suspect]
     Active Substance: LEVONORGESTREL
     Indication: CONTRACEPTION
     Dosage: 20 MCG/24HR, CONT
     Route: 015
     Dates: end: 20180829
  6. VITAMIN B12 [Concomitant]
     Active Substance: CYANOCOBALAMIN
     Dosage: 0.1 ML
     Route: 030
     Dates: start: 20180116

REACTIONS (14)
  - Uterine haemorrhage [None]
  - Menstruation irregular [Not Recovered/Not Resolved]
  - Uterine cervix stenosis [None]
  - Menorrhagia [None]
  - Metrorrhagia [None]
  - Device expulsion [Recovered/Resolved]
  - Genital haemorrhage [None]
  - Dyspnoea [None]
  - Device dislocation [Recovered/Resolved]
  - Dizziness [None]
  - Fatigue [None]
  - Embedded device [None]
  - Genital haemorrhage [Not Recovered/Not Resolved]
  - Abdominal pain lower [None]

NARRATIVE: CASE EVENT DATE: 2018
